FAERS Safety Report 6845277-8 (Version None)
Quarter: 2010Q3

REPORT INFORMATION
  Report Type: 
  Country: None (occurrence: None)
  Receive Date: 20100715
  Receipt Date: 20070815
  Transmission Date: 20110219
  Serious: No
  Sender: FDA-Public Use
  Company Number: US-PFIZER INC-2007068634

PATIENT
  Sex: Male

DRUGS (2)
  1. CHANTIX [Suspect]
     Indication: SMOKING CESSATION THERAPY
     Dates: start: 20070701, end: 20070812
  2. ANTIMIGRAINE PREPARATIONS [Concomitant]
     Indication: MIGRAINE

REACTIONS (7)
  - ABNORMAL DREAMS [None]
  - CONSTIPATION [None]
  - EPISTAXIS [None]
  - HEADACHE [None]
  - NAUSEA [None]
  - ORAL PAIN [None]
  - VOMITING [None]
